FAERS Safety Report 4325194-8 (Version None)
Quarter: 2004Q1

REPORT INFORMATION
  Report Type: 
  Country: None (occurrence: None)
  Receive Date: 20040324
  Receipt Date: 20040311
  Transmission Date: 20041129
  Serious: Yes (Death, Hospitalization)
  Sender: FDA-Public Use
  Company Number: WAES 0403USA01422

PATIENT
  Sex: Female

DRUGS (2)
  1. ZOCOR [Suspect]
     Indication: HYPERLIPIDAEMIA
     Dosage: 5 MG DAILY
     Dates: start: 19920227
  2. TRAPIDIL [Concomitant]

REACTIONS (4)
  - CHROMATURIA [None]
  - GALLBLADDER CANCER [None]
  - JAUNDICE [None]
  - METASTASES TO LIVER [None]
